FAERS Safety Report 4774857-9 (Version None)
Quarter: 2005Q3

REPORT INFORMATION
  Report Type: 
  Country: None (occurrence: None)
  Receive Date: 20050919
  Receipt Date: 20050906
  Transmission Date: 20060218
  Serious: Yes (Other)
  Sender: FDA-Public Use
  Company Number: 2005114076

PATIENT
  Sex: Male

DRUGS (7)
  1. LIPITOR [Suspect]
     Indication: BLOOD CHOLESTEROL INCREASED
     Dosage: 40 MG (40 MG, 1 IN 1 D)
  2. WARFARIN SODIUM [Concomitant]
  3. LANOXIN [Concomitant]
  4. FUROSEMIDE [Concomitant]
  5. PRINIVIL [Concomitant]
  6. TOPROL (METOPROLOL) [Concomitant]
  7. ALLOPURINOL [Concomitant]

REACTIONS (7)
  - AGEUSIA [None]
  - ANOSMIA [None]
  - BLOOD CHOLESTEROL INCREASED [None]
  - BODY HEIGHT DECREASED [None]
  - IMPLANTABLE DEFIBRILLATOR REPLACEMENT [None]
  - OBSTRUCTION [None]
  - SINUS DISORDER [None]
